FAERS Safety Report 8563610-6 (Version None)
Quarter: 2012Q3

REPORT INFORMATION
  Report Type: 
  Country: None (occurrence: None)
  Receive Date: 20120803
  Receipt Date: 20120726
  Transmission Date: 20120928
  Serious: Yes (Death)
  Sender: FDA-Public Use
  Company Number: US-BIOGENIDEC-2012BI027666

PATIENT
  Sex: Female

DRUGS (1)
  1. AVONEX [Suspect]
     Indication: MULTIPLE SCLEROSIS
     Route: 030

REACTIONS (5)
  - BLINDNESS [None]
  - DECUBITUS ULCER [None]
  - URINARY INCONTINENCE [None]
  - URINARY TRACT INFECTION [None]
  - MULTIPLE SCLEROSIS [None]
